FAERS Safety Report 7610580-0 (Version None)
Quarter: 2011Q3

REPORT INFORMATION
  Report Type: 
  Country: None (occurrence: None)
  Receive Date: 20110715
  Receipt Date: 20110712
  Transmission Date: 20111222
  Serious: Yes (Other)
  Sender: FDA-Public Use
  Company Number: US-AMGEN-USASP2011035620

PATIENT
  Sex: Male

DRUGS (3)
  1. RITUXIMAB [Concomitant]
     Dosage: UNK UNK, Q6MO
     Dates: start: 20020325
  2. NPLATE [Suspect]
     Indication: IDIOPATHIC THROMBOCYTOPENIC PURPURA
     Dosage: UNK
     Dates: start: 20090205, end: 20110708
  3. IVIGLOB-EX [Concomitant]
     Dosage: UNK UNK, QWK
     Dates: start: 20021002

REACTIONS (1)
  - THERAPEUTIC RESPONSE DECREASED [None]
